FAERS Safety Report 10869928 (Version 4)
Quarter: 2015Q1

REPORT INFORMATION
  Report Type: Spontaneous
  Country: FR (occurrence: FR)
  Receive Date: 20150226
  Receipt Date: 20150309
  Transmission Date: 20150721
  Serious: Yes (Hospitalization)
  Sender: FDA-Public Use
  Company Number: FR-JNJFOC-20150218445

PATIENT
  Sex: Male

DRUGS (2)
  1. REMICADE [Suspect]
     Active Substance: INFLIXIMAB
     Indication: COLITIS ULCERATIVE
     Route: 042
  2. REMICADE [Suspect]
     Active Substance: INFLIXIMAB
     Indication: ENTEROCOLITIS HAEMORRHAGIC
     Route: 042

REACTIONS (6)
  - Cholecystectomy [Unknown]
  - Haemorrhage [Unknown]
  - Pouchitis [Unknown]
  - Colitis ulcerative [Unknown]
  - Treatment failure [Unknown]
  - Colectomy total [Unknown]
